FAERS Safety Report 7155065-3 (Version None)
Quarter: 2010Q4

REPORT INFORMATION
  Report Type: 
  Country: None (occurrence: None)
  Receive Date: 20101214
  Receipt Date: 20100225
  Transmission Date: 20110411
  Serious: Yes (Other)
  Sender: FDA-Public Use
  Company Number: US-AMGEN-QUU370228

PATIENT

DRUGS (10)
  1. ENBREL [Suspect]
     Indication: RHEUMATOID ARTHRITIS
     Dosage: 50 MG, QWK
     Route: 058
     Dates: start: 20060201
  2. METHOTREXATE [Concomitant]
     Dosage: 17.5 MG, QWK
     Route: 048
     Dates: start: 20091023
  3. ERGOCALCIFEROL [Concomitant]
     Dosage: UNK UNK, UNK
     Dates: start: 20090601
  4. DICLOFENAC SODIUM [Concomitant]
     Dosage: UNK UNK, UNK
     Dates: start: 20091229
  5. ALENDRONATE SODIUM [Concomitant]
     Dosage: UNK UNK, UNK
     Dates: start: 20090330
  6. CELECOXIB [Concomitant]
     Dosage: UNK UNK, UNK
     Dates: start: 20091023
  7. ZOLPIDEM TARTRATE [Concomitant]
     Dosage: UNK UNK, UNK
     Dates: start: 20091023
  8. FOLIC ACID [Concomitant]
     Dosage: UNK UNK, UNK
     Dates: start: 20091023
  9. ROSUVASTATIN CALCIUM [Concomitant]
  10. UNSPECIFIED MEDICATION [Concomitant]

REACTIONS (4)
  - ANXIETY [None]
  - DEPRESSION [None]
  - DISTURBANCE IN ATTENTION [None]
  - TOOTH ABSCESS [None]
